FAERS Safety Report 16924043 (Version 3)
Quarter: 2020Q2

REPORT INFORMATION
  Report Type: Spontaneous
  Country: NL (occurrence: NL)
  Receive Date: 20191016
  Receipt Date: 20200629
  Transmission Date: 20200713
  Serious: Yes (Hospitalization, Disabling, Other)
  Sender: FDA-Public Use
  Company Number: NL-AUROBINDO-AUR-APL-2019-067104

PATIENT
  Age: 83 Year
  Sex: Female
  Weight: 85 kg

DRUGS (1)
  1. AMOXICILLIN+CLAVULANIC ACID FILM COATED TABLETS 500/125 MG [Suspect]
     Active Substance: AMOXICILLIN\CLAVULANIC ACID
     Indication: WOUND
     Dosage: 1 DOSAGE FORM, 3 TIMES A DAY (3D625)
     Route: 048
     Dates: start: 20190828

REACTIONS (1)
  - Meningitis aseptic [Recovering/Resolving]

NARRATIVE: CASE EVENT DATE: 20190830
